FAERS Safety Report 9046935 (Version 1)
Quarter: 2013Q1

REPORT INFORMATION
  Report Type: Spontaneous
  Country: US (occurrence: None)
  Receive Date: 20130129
  Receipt Date: 20130129
  Transmission Date: 20140127
  Serious: Yes (Life-Threatening, Hospitalization)
  Sender: FDA-Public Use
  Company Number: None

PATIENT
  Age: 44 Year
  Sex: Female
  Weight: 63.5 kg

DRUGS (2)
  1. PLAN B [Suspect]
     Indication: CONTRACEPTION
     Route: 048
     Dates: start: 20130113, end: 20130120
  2. PLAN B [Suspect]
     Indication: CONTRACEPTION
     Route: 048
     Dates: start: 20121001, end: 20130112

REACTIONS (3)
  - Chest pain [None]
  - Pyrexia [None]
  - Pulmonary embolism [None]
